FAERS Safety Report 6446046-3 (Version None)
Quarter: 2009Q4

REPORT INFORMATION
  Report Type: 
  Country: None (occurrence: None)
  Receive Date: 20091119
  Receipt Date: 20091005
  Transmission Date: 20100525
  Serious: Yes (Hospitalization)
  Sender: FDA-Public Use
  Company Number: US-BAYER-200934043NA

PATIENT
  Age: 35 Year
  Sex: Female
  Weight: 49 kg

DRUGS (1)
  1. MIRENA [Suspect]
     Indication: CONTRACEPTION
     Dosage: CONTINUOUS
     Route: 015
     Dates: start: 20090401, end: 20090901

REACTIONS (7)
  - ABDOMINAL PAIN LOWER [None]
  - CEREBRAL FUNGAL INFECTION [None]
  - DIZZINESS [None]
  - IMMUNODEFICIENCY [None]
  - NAUSEA [None]
  - VAGINAL DISCHARGE [None]
  - VAGINAL HAEMORRHAGE [None]
